FAERS Safety Report 9084688 (Version 1)
Quarter: 2013Q1

REPORT INFORMATION
  Report Type: Report from Study
  Country: US (occurrence: US)
  Receive Date: 20130131
  Receipt Date: 20130131
  Transmission Date: 20140127
  Serious: No
  Sender: FDA-Public Use
  Company Number: US-ABBOTT-12P-163-0995636-00

PATIENT
  Sex: Female
  Weight: 67.1 kg

DRUGS (1)
  1. HUMIRA [Suspect]
     Indication: RHEUMATOID ARTHRITIS
     Dates: start: 2012

REACTIONS (3)
  - Respiratory tract infection [Recovering/Resolving]
  - Sinusitis [Recovering/Resolving]
  - Bronchitis [Recovering/Resolving]
